FAERS Safety Report 11273870 (Version 1)
Quarter: 2015Q3

REPORT INFORMATION
  Report Type: Spontaneous
  Country: US (occurrence: None)
  Receive Date: 20150714
  Receipt Date: 20150714
  Transmission Date: 20151125
  Serious: Yes (Life-Threatening, Hospitalization, Other)
  Sender: FDA-Public Use
  Company Number: None

PATIENT
  Age: 60 Year
  Sex: Male
  Weight: 86.1 kg

DRUGS (3)
  1. XIGDUO XR [Suspect]
     Active Substance: DAPAGLIFLOZIN PROPANEDIOL\METFORMIN HYDROCHLORIDE
     Indication: TYPE 2 DIABETES MELLITUS
     Dosage: 5/500  Q DAY PO?JAN- FEB 2015 TO MID MAY 2015
     Route: 048
  2. LISINOPRIL. [Concomitant]
     Active Substance: LISINOPRIL
  3. XIGDUO XR [Suspect]
     Active Substance: DAPAGLIFLOZIN PROPANEDIOL\METFORMIN HYDROCHLORIDE
     Dosage: 10/2000 Q DAY PO?MID MAY 2015 TO 5/25/2015
     Route: 048
     Dates: end: 20150525

REACTIONS (9)
  - Thirst [None]
  - Blood pressure increased [None]
  - Ataxia [None]
  - VIIth nerve paralysis [None]
  - Malaise [None]
  - Dizziness [None]
  - Cerebrovascular accident [None]
  - Polyuria [None]
  - Weight decreased [None]

NARRATIVE: CASE EVENT DATE: 20150508
